FAERS Safety Report 6836653 (Version 3)
Quarter: 2012Q4

REPORT INFORMATION
  Report Type: 
  Country: GB (occurrence: GB)
  Receive Date: 20081208
  Receipt Date: 20121011
  Transmission Date: 20130627
  Serious: Yes (Death, Hospitalization, Other)
  Sender: FDA-Public Use
  Company Number: GB-PFIZER INC-2008101147

PATIENT
  Age: 18 Year
  Sex: Female
  Weight: 55 kg

DRUGS (6)
  1. PHENYTOIN SODIUM [Suspect]
     Indication: CONVULSION
  2. GENTAMICIN SULFATE [Suspect]
     Indication: LOWER RESPIRATORY TRACT INFECTION
  3. ACICLOVIR [Suspect]
     Indication: MENINGITIS
  4. TAZOCIN [Suspect]
     Indication: MENINGITIS
  5. CEFOTAXIME [Suspect]
     Indication: MENINGITIS
  6. PREDNISOLONE [Concomitant]

REACTIONS (3)
  - Toxic epidermal necrolysis [Fatal]
  - Sepsis [Fatal]
  - Multi-organ failure [Fatal]
